FAERS Safety Report 25840489 (Version 2)
Quarter: 2025Q4

REPORT INFORMATION
  Report Type: Spontaneous
  Country: CA (occurrence: CA)
  Receive Date: 20250924
  Receipt Date: 20251111
  Transmission Date: 20260119
  Serious: Yes (Other)
  Sender: TEVA
  Company Number: CA-TEVA-VS-3374700

PATIENT
  Age: 13 Year
  Sex: Male

DRUGS (6)
  1. TOBRAMYCIN [Suspect]
     Active Substance: TOBRAMYCIN
     Indication: Antibiotic therapy
     Dosage: DOSE FORM: NOT SPECIFIED
     Route: 065
  2. RIFAMPIN [Suspect]
     Active Substance: RIFAMPIN
     Indication: Antibiotic therapy
     Dosage: DOSE FORM: NOT SPECIFIED
     Route: 065
  3. PENICILLIN G POTASSIUM [Suspect]
     Active Substance: PENICILLIN G POTASSIUM
     Indication: Antibiotic therapy
     Route: 065
  4. VANCOMYCIN [Suspect]
     Active Substance: VANCOMYCIN
     Indication: Antibiotic therapy
     Dosage: VANCOMYCINHYDROCHLORIDE FOR INJECTION, USP,DOSE FORM:POWDER FOR SOLUTION INTRAVENOUS
     Route: 065
  5. VANCOMYCIN [Suspect]
     Active Substance: VANCOMYCIN
     Indication: Antibiotic therapy
     Dosage: DOSE FORM: NOT SPECIFIED
     Route: 065
  6. UNSPECIFIED INGREDIENT [Suspect]
     Active Substance: UNSPECIFIED INGREDIENT
     Indication: Antibiotic therapy
     Route: 065

REACTIONS (1)
  - Drug reaction with eosinophilia and systemic symptoms [Unknown]
